FAERS Safety Report 18278573 (Version 1)
Quarter: 2020Q3

REPORT INFORMATION
  Report Type: Spontaneous
  Country: US (occurrence: US)
  Receive Date: 20200917
  Receipt Date: 20200917
  Transmission Date: 20201103
  Serious: Yes (Other)
  Sender: FDA-Public Use
  Company Number: None

PATIENT
  Sex: Male
  Weight: 63 kg

DRUGS (16)
  1. IRON SUPPLEMENTS [Concomitant]
     Active Substance: IRON
  2. REGULAR VITAM [Concomitant]
  3. HYDRALAZINE [Concomitant]
     Active Substance: HYDRALAZINE HYDROCHLORIDE
  4. VASCEPA [Concomitant]
     Active Substance: ICOSAPENT ETHYL
  5. PROCRIT [Concomitant]
     Active Substance: ERYTHROPOIETIN
  6. FUROSEMIDE. [Concomitant]
     Active Substance: FUROSEMIDE
  7. STIOLTO RESPIMAT [Concomitant]
     Active Substance: OLODATEROL HYDROCHLORIDE\TIOTROPIUM BROMIDE MONOHYDRATE
  8. LSOSORBIDE [Concomitant]
  9. ATORVASTATIN [Concomitant]
     Active Substance: ATORVASTATIN
  10. ENTRESTO [Suspect]
     Active Substance: SACUBITRIL\VALSARTAN
     Indication: CARDIAC DISORDER
  11. EZETIMIBE. [Concomitant]
     Active Substance: EZETIMIBE
  12. FOLIC ACID. [Concomitant]
     Active Substance: FOLIC ACID
  13. RESPIMAT [Concomitant]
  14. METOPROLOL. [Concomitant]
     Active Substance: METOPROLOL
  15. PROCRIT [Concomitant]
     Active Substance: ERYTHROPOIETIN
  16. BABY ASPIRIN [Concomitant]
     Active Substance: ASPIRIN

REACTIONS (4)
  - Feeling abnormal [None]
  - Nephropathy [None]
  - Weight decreased [None]
  - Dyspnoea [None]
